FAERS Safety Report 19467270 (Version 1)
Quarter: 2021Q2

REPORT INFORMATION
  Report Type: Spontaneous
  Country: US (occurrence: US)
  Receive Date: 20210628
  Receipt Date: 20210628
  Transmission Date: 20210717
  Serious: No
  Sender: FDA-Public Use
  Company Number: US-DRREDDYS-SPO/USA/21/0136854

PATIENT
  Age: 64 Year
  Sex: Male
  Weight: 103.5 kg

DRUGS (1)
  1. OMEPRAZOLE DELAYED?RELEASE TABLETS, 20 MG [OTC] [Suspect]
     Active Substance: OMEPRAZOLE
     Indication: DYSPEPSIA
     Dosage: ONE TABLET DAILY
     Dates: start: 2020

REACTIONS (2)
  - Ageusia [Unknown]
  - Product use issue [Unknown]
